FAERS Safety Report 4937104-0 (Version None)
Quarter: 2006Q1

REPORT INFORMATION
  Report Type: 
  Country: None (occurrence: None)
  Receive Date: 20060302
  Receipt Date: 20060224
  Transmission Date: 20060701
  Serious: Yes (Hospitalization)
  Sender: FDA-Public Use
  Company Number: 2006-139005-NL

PATIENT
  Age: 8 Year
  Sex: Male

DRUGS (2)
  1. DANAPAROID SODIUM [Suspect]
     Dosage: ANTI-XA
     Dates: start: 20051027, end: 20051104
  2. HEPARIN [Suspect]
     Dosage: INTRAVENOUS (NOS)
     Route: 042
     Dates: start: 20051019, end: 20051026

REACTIONS (2)
  - DEEP VEIN THROMBOSIS [None]
  - HEPARIN-INDUCED THROMBOCYTOPENIA [None]
